FAERS Safety Report 24724602 (Version 1)
Quarter: 2024Q4

REPORT INFORMATION
  Report Type: Spontaneous
  Country: US (occurrence: US)
  Receive Date: 20241212
  Receipt Date: 20241212
  Transmission Date: 20250115
  Serious: Yes (Other)
  Sender: REGENERON
  Company Number: US-REGENERON PHARMACEUTICALS, INC.-2024-169858

PATIENT
  Age: 80 Year
  Sex: Male

DRUGS (1)
  1. EYLEA [Suspect]
     Active Substance: AFLIBERCEPT
     Indication: Neovascular age-related macular degeneration
     Dosage: 2 MG, Q4W, FORMULATION: EYLEA 2MG UNKNOWN, RIGHT EYE
     Route: 031

REACTIONS (3)
  - Neovascular age-related macular degeneration [Unknown]
  - Condition aggravated [Unknown]
  - Visual acuity reduced [Unknown]
